FAERS Safety Report 4655820-5 (Version None)
Quarter: 2005Q2

REPORT INFORMATION
  Report Type: 
  Country: None (occurrence: None)
  Receive Date: 20050505
  Receipt Date: 20050414
  Transmission Date: 20051028
  Serious: Yes (Hospitalization)
  Sender: FDA-Public Use
  Company Number: DE_050415705

PATIENT
  Age: 8 Day
  Sex: Female
  Weight: 2 kg

DRUGS (4)
  1. ZYPREXA [Suspect]
     Dates: start: 20040801, end: 20041128
  2. SOLIAN (AMISULPRIDE) [Concomitant]
  3. EDRONAX (REBOXETINE) [Concomitant]
  4. ST. JOHN'S WORT [Concomitant]

REACTIONS (3)
  - CAESAREAN SECTION [None]
  - DRUG EXPOSURE DURING PREGNANCY [None]
  - PREMATURE BABY [None]
